FAERS Safety Report 12872028 (Version 2)
Quarter: 2016Q4

REPORT INFORMATION
  Report Type: Spontaneous
  Country: ES (occurrence: ES)
  Receive Date: 20161021
  Receipt Date: 20161101
  Transmission Date: 20170207
  Serious: Yes (Other)
  Sender: FDA-Public Use
  Company Number: ES-AMGEN-ESPSP2016138153

PATIENT
  Age: 50 Year
  Sex: Male
  Weight: 92 kg

DRUGS (4)
  1. REPATHA [Suspect]
     Active Substance: EVOLOCUMAB
     Indication: DYSLIPIDAEMIA
     Dosage: 140 MG, Q2WK
     Route: 058
     Dates: start: 20160407
  2. REPATHA [Suspect]
     Active Substance: EVOLOCUMAB
     Indication: ISCHAEMIC STROKE
  3. ASA [Concomitant]
     Active Substance: ASPIRIN
     Indication: ISCHAEMIC STROKE
     Dosage: 100 MG, QD
     Route: 048
     Dates: start: 20151106
  4. METFORMIN [Concomitant]
     Active Substance: METFORMIN HYDROCHLORIDE
     Indication: TYPE 2 DIABETES MELLITUS
     Dosage: 850 MG, QD
     Route: 048
     Dates: start: 201207

REACTIONS (1)
  - Hypertransaminasaemia [Not Recovered/Not Resolved]

NARRATIVE: CASE EVENT DATE: 20160527
